FAERS Safety Report 4331994-0 (Version None)
Quarter: 2004Q2

REPORT INFORMATION
  Report Type: 
  Country: None (occurrence: None)
  Receive Date: 20040405
  Receipt Date: 20031027
  Transmission Date: 20050107
  Serious: No
  Sender: FDA-Public Use
  Company Number: US-GLAXOSMITHKLINE-A0431781A

PATIENT
  Age: 23 Year
  Sex: Female

DRUGS (2)
  1. SEREVENT [Suspect]
     Indication: BRONCHOSPASM
     Dosage: 120MCG TWICE PER DAY
     Route: 055
     Dates: start: 20030502, end: 20030504
  2. AUGMENTIN [Concomitant]

REACTIONS (1)
  - COUGH [None]
